FAERS Safety Report 5828456-8 (Version None)
Quarter: 2008Q3

REPORT INFORMATION
  Report Type: 
  Country: None (occurrence: None)
  Receive Date: 20080729
  Receipt Date: 20080714
  Transmission Date: 20090109
  Serious: Yes (Death)
  Sender: FDA-Public Use
  Company Number: 2008AL008694

PATIENT
  Age: 74 Year
  Sex: Male

DRUGS (4)
  1. SERTRALINE HYDROCHLORIDE TABLETS, 100 MG (BASE) (AELC) (SERTRALINE [Suspect]
     Indication: DEPRESSION
     Dosage: 200 MG; QD, PO
     Route: 048
     Dates: start: 20060626, end: 20060701
  2. ABILIFY [Concomitant]
  3. MIRTAZAPINE [Concomitant]
  4. ZOPICLONE [Concomitant]

REACTIONS (4)
  - ALCOHOL USE [None]
  - ANTIDEPRESSANT DRUG LEVEL ABOVE THERAPEUTIC [None]
  - ASPHYXIA [None]
  - COMPLETED SUICIDE [None]
